FAERS Safety Report 9980913 (Version 1)
Quarter: 2014Q1

REPORT INFORMATION
  Report Type: Spontaneous
  Country: US (occurrence: US)
  Receive Date: 20140307
  Receipt Date: 20140307
  Transmission Date: 20141002
  Serious: No
  Sender: FDA-Public Use
  Company Number: US-PFIZER INC-2014065754

PATIENT
  Age: 81 Year
  Sex: Female
  Weight: 63.49 kg

DRUGS (2)
  1. LYRICA [Suspect]
     Indication: DIABETIC NEUROPATHY
     Dosage: 50MG IN THE MORNING, 50MG AT 2 O CLOCK IN THE AFTERNOON AND 100MG AT NIGHT BEFORE GOING TO BED
     Route: 048
     Dates: start: 20140227
  2. TEGRETOL [Suspect]
     Dosage: UNK

REACTIONS (19)
  - Hallucination [Not Recovered/Not Resolved]
  - Impaired driving ability [Not Recovered/Not Resolved]
  - Hearing impaired [Not Recovered/Not Resolved]
  - Back pain [Not Recovered/Not Resolved]
  - Pain in extremity [Not Recovered/Not Resolved]
  - Reading disorder [Not Recovered/Not Resolved]
  - Visual impairment [Not Recovered/Not Resolved]
  - Aphasia [Not Recovered/Not Resolved]
  - Euphoric mood [Not Recovered/Not Resolved]
  - Feeling drunk [Not Recovered/Not Resolved]
  - Local swelling [Not Recovered/Not Resolved]
  - Feeling abnormal [Not Recovered/Not Resolved]
  - Fatigue [Not Recovered/Not Resolved]
  - Pain [Not Recovered/Not Resolved]
  - Limb discomfort [Unknown]
  - Headache [Unknown]
  - Abdominal discomfort [Unknown]
  - Discomfort [Unknown]
  - Liver disorder [Unknown]
